FAERS Safety Report 21183438 (Version 2)
Quarter: 2024Q4

REPORT INFORMATION
  Report Type: Spontaneous
  Country: US (occurrence: US)
  Receive Date: 20220808
  Receipt Date: 20241127
  Transmission Date: 20250115
  Serious: Yes (Hospitalization)
  Sender: BIOGEN
  Company Number: US-BIOGEN-2022BI01143659

PATIENT
  Sex: Female
  Weight: 57.2 kg

DRUGS (16)
  1. SPINRAZA [Suspect]
     Active Substance: NUSINERSEN
     Indication: Spinal muscular atrophy
     Dosage: MAINTENANCE DOSE
     Route: 050
     Dates: start: 201703
  2. ALBUTEROL [Concomitant]
     Active Substance: ALBUTEROL
     Indication: Product used for unknown indication
     Dosage: (0.083 %) NEBULIZER SOLUTION, TAKE 3 ML (2.5 MG) BY NEBULIZATION EVERY 4 (FOUR) HOURS AS NEEDED F...
     Route: 050
  3. ALBUTEROL [Concomitant]
     Active Substance: ALBUTEROL
     Dosage: ACTUATION INHL INHALER, INHALE 2 PUFFS EVERY 4 (FOUR) HOURS AS NEEDED FOR WHEEZING ALWAYS WITH A ...
     Route: 050
  4. CHOLECALCIFEROL [Concomitant]
     Active Substance: CHOLECALCIFEROL
     Indication: Product used for unknown indication
     Route: 050
  5. FLUTICASONE PROPIONATE [Concomitant]
     Active Substance: FLUTICASONE PROPIONATE
     Indication: Product used for unknown indication
     Dosage: 0.005 % OINTMENT, APPLY TOPICALLY 2 (TWO) TIMES A DAY AS NEEDED (ATOPIC DERMATITIS. DO NOT USE ON...
     Route: 050
  6. NORETHINDRONE ACETATE [Concomitant]
     Active Substance: NORETHINDRONE ACETATE
     Indication: Product used for unknown indication
     Dosage: 1,5-30 MG-MCG, TAKE 1. TABLET BY MOUTH DAILY, DISP: 84 TABLET, RFI: 1 - SERTRALINE (ZOLOFT) 25 MG...
     Route: 050
  7. ETHINYL ESTRADIOL [Concomitant]
     Active Substance: ETHINYL ESTRADIOL
     Indication: Product used for unknown indication
     Dosage: 1,5-30 MG-MCG, TAKE 1. TABLET BY MOUTH DAILY, DISP: 84 TABLET, RFI: 1 - SERTRALINE (ZOLOFT) 25 MG...
     Route: 050
  8. ZOLEDRONIC ACID [Concomitant]
     Active Substance: ZOLEDRONIC ACID
     Indication: Product used for unknown indication
     Dosage: 4 MG/5 ML INJECTION, DILUTE 1.5 MG (1.875 ML) IN 100 ML NS AND INFUSE OVER 60 MINUTES, DISP: 1.87...
     Route: 050
  9. CALCIUM CARBONATE [Concomitant]
     Active Substance: CALCIUM CARBONATE
     Indication: Product used for unknown indication
     Dosage: CALCIUM CARBONATE (OS-CAL) 500 MG CALCIUM (1,250 MG) TABLET, TAKE 3 TABS DAILY FOR 5 DAYS PRE AND...
     Route: 050
  10. sodium chloride 3 % [Concomitant]
     Indication: Product used for unknown indication
     Dosage: 3 % NEBULIZER SOLUTION, TAKE 4 ML BY NEBULIZATION EVERY 4 (FOUR) HOURS AS NEEDED FOR COUGH (PATIE...
     Route: 050
  11. TRIAMCINOLONE [Concomitant]
     Active Substance: TRIAMCINOLONE
     Indication: Product used for unknown indication
     Dosage: APPLY TOPICALLY 2 (TWO) TIMES A DAY AS NEEDED (ECZEMA TO HANDS) (PATIENT NOT TAKING: REPORTED ON ...
     Route: 050
  12. IBUPROFEN [Concomitant]
     Active Substance: IBUPROFEN
     Indication: Headache
     Route: 050
  13. RIBOFLAVIN [Concomitant]
     Active Substance: RIBOFLAVIN
     Indication: Product used for unknown indication
     Route: 050
  14. SUMATRIPTAN [Concomitant]
     Active Substance: SUMATRIPTAN
     Indication: Product used for unknown indication
     Route: 050
  15. POTASSIUM PHOSPHATE [Concomitant]
     Active Substance: POTASSIUM PHOSPHATE
     Indication: Product used for unknown indication
     Dosage: 280-160-250 MG, 1 PACKET THREE TIMES DAILY FOR 5 DAYS PRE AND 5 DAYS POST INFUSION (PATIENT NOT T...
     Route: 050
  16. SODIUM PHOSPHATE [Concomitant]
     Active Substance: SODIUM PHOSPHATE
     Indication: Product used for unknown indication
     Dosage: 280-160-250 MG, 1 PACKET THREE TIMES DAILY FOR 5 DAYS PRE AND 5 DAYS POST INFUSION (PATIENT NOT T...
     Route: 050

REACTIONS (1)
  - Neuromuscular scoliosis [Unknown]
